FAERS Safety Report 13007101 (Version 6)
Quarter: 2020Q1

REPORT INFORMATION
  Report Type: Report from Study
  Country: ES (occurrence: ES)
  Receive Date: 20161207
  Receipt Date: 20200107
  Transmission Date: 20200409
  Serious: Yes (Hospitalization, Disabling, Other)
  Sender: FDA-Public Use
  Company Number: ES-SA-2016SA078569

PATIENT
  Age: 38 Year
  Sex: Female

DRUGS (15)
  1. ALEMTUZUMAB [Suspect]
     Active Substance: ALEMTUZUMAB
     Indication: RELAPSING MULTIPLE SCLEROSIS
     Dosage: 12 MG, QD
     Route: 041
     Dates: start: 20160314, end: 20160318
  2. POLARAMINE [Concomitant]
     Active Substance: DEXCHLORPHENIRAMINE MALEATE
     Dosage: 2 G, UNK
     Route: 042
     Dates: start: 20170523, end: 20170525
  3. PARACETAMOL [Concomitant]
     Active Substance: ACETAMINOPHEN
     Indication: PROPHYLAXIS
     Dosage: 1 G,QD
     Route: 042
     Dates: start: 20160314, end: 20160318
  4. PARACETAMOL [Concomitant]
     Active Substance: ACETAMINOPHEN
     Dosage: 2 G, UNK
     Route: 042
     Dates: start: 20170523, end: 20170525
  5. ACICLOVIR [Concomitant]
     Active Substance: ACYCLOVIR
     Dosage: 400 MG, UNK
     Route: 048
     Dates: start: 20170517, end: 201708
  6. SOLU MODERIN [Concomitant]
     Active Substance: METHYLPREDNISOLONE SODIUM SUCCINATE
     Indication: PROPHYLAXIS
     Dosage: 1 G,QD
     Route: 042
     Dates: start: 20160314, end: 20160317
  7. OMEPRAZOLE. [Concomitant]
     Active Substance: OMEPRAZOLE
     Indication: PROPHYLAXIS
     Dosage: 20 MG,QD
     Route: 048
     Dates: start: 20160314, end: 20160318
  8. ACICLOVIR [Concomitant]
     Active Substance: ACYCLOVIR
     Indication: PROPHYLAXIS
     Dosage: 200 MG,QD
     Route: 048
     Dates: start: 20160314
  9. POLARAMINE [Concomitant]
     Active Substance: DEXCHLORPHENIRAMINE MALEATE
     Indication: PROPHYLAXIS
     Dosage: 1 DF,QD
     Route: 042
     Dates: start: 20160314, end: 20160318
  10. SOLU MODERIN [Concomitant]
     Active Substance: METHYLPREDNISOLONE SODIUM SUCCINATE
     Dosage: 250 MG,QD
     Route: 042
     Dates: start: 20160318, end: 20160318
  11. DOBUPAL [Concomitant]
     Active Substance: VENLAFAXINE HYDROCHLORIDE
     Dosage: 150 MG,QD
     Route: 048
     Dates: start: 201504
  12. ALEMTUZUMAB [Suspect]
     Active Substance: ALEMTUZUMAB
     Dosage: 12 MG, QD
     Route: 041
     Dates: start: 20170523, end: 20170525
  13. PARACETAMOL [Concomitant]
     Active Substance: ACETAMINOPHEN
     Dosage: 1 G,QD
     Route: 048
     Dates: start: 20160314, end: 20160318
  14. ATARAX [Concomitant]
     Active Substance: HYDROXYZINE HYDROCHLORIDE
     Indication: PROPHYLAXIS
     Dosage: 25 MG, UNK
     Route: 048
     Dates: start: 20170525, end: 20170530
  15. PANTOPRAZOL [PANTOPRAZOLE] [Concomitant]
     Active Substance: PANTOPRAZOLE
     Indication: PROPHYLAXIS
     Dosage: 40 MG, UNK
     Route: 042
     Dates: start: 20170521, end: 20170522

REACTIONS (40)
  - Palpitations [Recovered/Resolved]
  - Anxiety [Recovering/Resolving]
  - Multiple sclerosis relapse [Recovered/Resolved]
  - Pyrexia [Recovered/Resolved]
  - Urticaria [Recovered/Resolved]
  - Hypertension [Recovered/Resolved]
  - Fatigue [Recovered/Resolved]
  - Diarrhoea [Recovered/Resolved]
  - Feeling hot [Recovered/Resolved]
  - Rash [Recovered/Resolved]
  - Hypothyroidism [Recovered/Resolved]
  - Odynophagia [Recovered/Resolved]
  - Vitamin D deficiency [Recovered/Resolved]
  - Thrombocytosis [Recovered/Resolved]
  - Hypercholesterolaemia [Not Recovered/Not Resolved]
  - Dermatitis acneiform [Recovered/Resolved]
  - Decreased appetite [Recovered/Resolved]
  - Influenza [Recovered/Resolved]
  - Vision blurred [Recovered/Resolved]
  - Mouth ulceration [Recovered/Resolved]
  - Hepatic function abnormal [Recovered/Resolved]
  - Dysuria [Recovered/Resolved]
  - Pregnancy [Unknown]
  - Rash [Recovered/Resolved]
  - Hypertension [Recovered/Resolved]
  - Loss of proprioception [Recovered/Resolved]
  - Asthenia [Recovered/Resolved]
  - Pyrexia [Recovered/Resolved]
  - Rash pruritic [Recovered/Resolved]
  - Multiple sclerosis relapse [Recovered/Resolved]
  - Rash [Recovered/Resolved]
  - Contusion [Recovered/Resolved]
  - Diarrhoea [Recovered/Resolved]
  - Feeling hot [Recovered/Resolved]
  - Asthenia [Recovered/Resolved]
  - Rash [Recovered/Resolved]
  - Myalgia [Recovered/Resolved]
  - Bacterial test positive [Recovered/Resolved]
  - Acute sinusitis [Recovered/Resolved]
  - Lymphopenia [Recovering/Resolving]

NARRATIVE: CASE EVENT DATE: 20160314
